FAERS Safety Report 20691423 (Version 1)
Quarter: 2022Q2

REPORT INFORMATION
  Report Type: Spontaneous
  Country: MX (occurrence: MX)
  Receive Date: 20220408
  Receipt Date: 20220408
  Transmission Date: 20220720
  Serious: Yes (Other)
  Sender: FDA-Public Use
  Company Number: MX-BAYER-2022P000350

PATIENT
  Age: 71 Year
  Sex: Male
  Weight: 100 kg

DRUGS (1)
  1. XARELTO [Suspect]
     Active Substance: RIVAROXABAN
     Indication: Product used for unknown indication
     Dosage: 20 MG EVERY 3 DAYS
     Route: 048
     Dates: start: 20220401

REACTIONS (3)
  - Haemorrhage [Unknown]
  - Arrhythmia [Unknown]
  - Off label use [Unknown]

NARRATIVE: CASE EVENT DATE: 20220401
